FAERS Safety Report 17254143 (Version 2)
Quarter: 2020Q1

REPORT INFORMATION
  Report Type: Spontaneous
  Country: JP (occurrence: JP)
  Receive Date: 20200109
  Receipt Date: 20200110
  Transmission Date: 20200409
  Serious: Yes (Other)
  Sender: FDA-Public Use
  Company Number: JP-PFIZER INC-2020009908

PATIENT
  Age: 75 Year
  Sex: Female

DRUGS (1)
  1. AMLODIN [Suspect]
     Active Substance: AMLODIPINE BESYLATE
     Dosage: UNK

REACTIONS (7)
  - Vomiting [Unknown]
  - Overdose [Unknown]
  - Renal impairment [Unknown]
  - Diarrhoea [Unknown]
  - Hypotension [Unknown]
  - Tachycardia [Unknown]
  - Toxicity to various agents [Unknown]
